FAERS Safety Report 5017702-9 (Version None)
Quarter: 2006Q2

REPORT INFORMATION
  Report Type: 
  Country: None (occurrence: None)
  Receive Date: 20060525
  Receipt Date: 20060516
  Transmission Date: 20061013
  Serious: Yes (Hospitalization, Other)
  Sender: FDA-Public Use
  Company Number: 232996K06USA

PATIENT
  Age: 49 Year
  Sex: Female
  Weight: 49.8957 kg

DRUGS (8)
  1. REBIF [Suspect]
     Indication: MULTIPLE SCLEROSIS
     Dosage: 44 MCG, 3 IN 1 WEEKS, SUBCUTANEOUS
     Route: 058
     Dates: start: 20051209
  2. XANAX [Concomitant]
  3. WELLBUTRIN [Concomitant]
  4. ESTRADIOL [Concomitant]
  5. HYDROCHLOROTHIAZIDE [Concomitant]
  6. METAVWX        (VITAMIN B) [Concomitant]
  7. ZYRTEC D     (CIRRUS) [Concomitant]
  8. PROVIGIL         (MODENAFIL) [Concomitant]

REACTIONS (12)
  - BLOOD POTASSIUM DECREASED [None]
  - CHOLELITHIASIS [None]
  - DEHYDRATION [None]
  - DIPLOPIA [None]
  - DIVERTICULITIS [None]
  - FATIGUE [None]
  - GASTROENTERITIS [None]
  - INJECTION SITE HAEMORRHAGE [None]
  - PAIN [None]
  - PAIN IN EXTREMITY [None]
  - PYREXIA [None]
  - SENSATION OF HEAVINESS [None]
